FAERS Safety Report 13465344 (Version 1)
Quarter: 2017Q2

REPORT INFORMATION
  Report Type: Report from Study
  Country: US (occurrence: US)
  Receive Date: 20170421
  Receipt Date: 20170421
  Transmission Date: 20170830
  Serious: Yes (Hospitalization)
  Sender: FDA-Public Use
  Company Number: US-AEGERION PHARMACEUTICAL, INC-AEGR001614

PATIENT
  Age: 14 Year
  Sex: Female

DRUGS (1)
  1. METRELEPTIN [Suspect]
     Active Substance: METRELEPTIN
     Indication: LIPODYSTROPHY ACQUIRED
     Dosage: UNK
     Dates: start: 20010910, end: 20021127

REACTIONS (5)
  - Liver disorder [Recovering/Resolving]
  - Proteinuria [Not Recovered/Not Resolved]
  - Alanine aminotransferase increased [Recovering/Resolving]
  - Aspartate aminotransferase increased [Recovering/Resolving]
  - Hypoalbuminaemia [Unknown]

NARRATIVE: CASE EVENT DATE: 20021106
